FAERS Safety Report 5526789-6 (Version None)
Quarter: 2007Q4

REPORT INFORMATION
  Report Type: 
  Country: None (occurrence: None)
  Receive Date: 20071127
  Receipt Date: 20071116
  Transmission Date: 20080405
  Serious: Yes (Disabling)
  Sender: FDA-Public Use
  Company Number: US-ROCHE-529124

PATIENT
  Age: 54 Year
  Sex: Female
  Weight: 60 kg

DRUGS (5)
  1. CELLCEPT [Suspect]
     Indication: MYASTHENIA GRAVIS
     Dosage: 2 CAPSULES TWICE DAILY
     Route: 048
     Dates: start: 20071001
  2. CELLCEPT [Suspect]
     Route: 048
  3. CELLCEPT [Suspect]
     Route: 048
  4. PREDNISONE TAB [Concomitant]
  5. MULTI-VITAMIN [Concomitant]
     Dosage: STRENGTH: 1

REACTIONS (3)
  - HERPES SIMPLEX [None]
  - IRON DEFICIENCY [None]
  - VARICELLA ZOSTER VIRUS SEROLOGY POSITIVE [None]
